FAERS Safety Report 6166158-1 (Version None)
Quarter: 2009Q2

REPORT INFORMATION
  Report Type: 
  Country: None (occurrence: None)
  Receive Date: 20090422
  Receipt Date: 20090422
  Transmission Date: 20091009
  Serious: Yes (Other)
  Sender: FDA-Public Use
  Company Number: None

PATIENT
  Sex: Male

DRUGS (4)
  1. SINGULAIR [Suspect]
     Indication: ECZEMA
     Dosage: 4MG TAB QD (O); 2MG GRANULE QD (0)
     Dates: start: 20080527, end: 20080908
  2. SINGULAIR [Suspect]
     Indication: URTICARIA
     Dosage: 4MG TAB QD (O); 2MG GRANULE QD (0)
     Dates: start: 20080527, end: 20080908
  3. SINGULAIR [Suspect]
     Indication: ECZEMA
     Dosage: 4MG TAB QD (O); 2MG GRANULE QD (0)
     Dates: start: 20080908, end: 20090101
  4. SINGULAIR [Suspect]
     Indication: URTICARIA
     Dosage: 4MG TAB QD (O); 2MG GRANULE QD (0)
     Dates: start: 20080908, end: 20090101

REACTIONS (2)
  - NIGHTMARE [None]
  - SCREAMING [None]
